FAERS Safety Report 4389813-0 (Version None)
Quarter: 2004Q2

REPORT INFORMATION
  Report Type: 
  Country: None (occurrence: None)
  Receive Date: 20040630
  Receipt Date: 20040618
  Transmission Date: 20050107
  Serious: Yes (Hospitalization, Other)
  Sender: FDA-Public Use
  Company Number: 2004026536

PATIENT
  Age: 65 Year
  Sex: Male

DRUGS (5)
  1. MAGNEX (CEFOPERAZONE, SULBACTAM) [Suspect]
     Indication: CELLULITIS
     Dosage: 2 GRAM (1 GRAM, 2 IN 1 D) INTRAVENOUS
     Route: 042
     Dates: start: 20040321, end: 20040413
  2. CEFOTAXIME SODIUM [Concomitant]
  3. INSULIN HUMAN (INSULIN HUMAN) [Concomitant]
  4. CORDALIN / OLD FORM /  (ETOFYLLINE, THEOPHYLLINE) [Concomitant]
  5. METRONIDAZOLE [Concomitant]

REACTIONS (8)
  - BODY TEMPERATURE INCREASED [None]
  - CHILLS [None]
  - COUGH [None]
  - DRUG HYPERSENSITIVITY [None]
  - HYPERHIDROSIS [None]
  - INFECTION [None]
  - LEG AMPUTATION [None]
  - VOMITING [None]
